FAERS Safety Report 16245946 (Version 2)
Quarter: 2019Q2

REPORT INFORMATION
  Report Type: Spontaneous
  Country: US (occurrence: US)
  Receive Date: 20190426
  Receipt Date: 20190617
  Transmission Date: 20190711
  Serious: Yes (Hospitalization, Other)
  Sender: FDA-Public Use
  Company Number: US-NOVOPROD-658719

PATIENT
  Age: 89 Year
  Sex: Female

DRUGS (3)
  1. MYRBETRIQ [Concomitant]
     Active Substance: MIRABEGRON
     Indication: HYPERTONIC BLADDER
     Dosage: UNK
     Route: 065
  2. VAGIFEM LD [Suspect]
     Active Substance: ESTRADIOL
     Indication: MENOPAUSAL SYMPTOMS
     Dosage: 10 MCG
     Route: 067
     Dates: start: 2010
  3. VAGIFEM LD [Suspect]
     Active Substance: ESTRADIOL
     Indication: INCONTINENCE

REACTIONS (2)
  - Concussion [Unknown]
  - Fall [Unknown]
